FAERS Safety Report 7605133-4 (Version None)
Quarter: 2011Q3

REPORT INFORMATION
  Report Type: 
  Country: None (occurrence: None)
  Receive Date: 20110713
  Receipt Date: 20110126
  Transmission Date: 20111222
  Serious: Yes (Hospitalization, Other)
  Sender: FDA-Public Use
  Company Number: US-BAYER-2011-008082

PATIENT
  Age: 76 Year
  Sex: Female
  Weight: 61 kg

DRUGS (24)
  1. VERSED [Concomitant]
     Dosage: 2 MG, UNK
     Route: 042
     Dates: start: 20040107, end: 20040107
  2. VITAMIN D [Concomitant]
  3. TRASYLOL [Suspect]
     Indication: MITRAL VALVE REPLACEMENT
     Dosage: 200 ML LOADING DOSE FOLLOWED BY 50 ML PER HOUR DRIP
     Route: 042
     Dates: start: 20040107, end: 20040107
  4. ZESTRIL [Concomitant]
     Dosage: 10 MG, QD
     Route: 048
     Dates: start: 19990101
  5. TOPROL-XL [Concomitant]
  6. ALENDRONATE SODIUM [Concomitant]
  7. LIPITOR [Concomitant]
     Indication: PRODUCT USED FOR UNKNOWN INDICATION
     Dosage: 10 MG, QD
     Route: 048
     Dates: start: 19990101
  8. OMNIPAQUE 140 [Concomitant]
     Indication: CATHETERISATION CARDIAC
     Dosage: UNK
     Dates: start: 20031217
  9. HEPARIN [Concomitant]
     Dosage: 100 CC
     Route: 042
     Dates: start: 20040107, end: 20040107
  10. NORMOSOL [Concomitant]
     Dosage: 1200
     Route: 042
     Dates: start: 20040107
  11. DILTIAZEM [Concomitant]
     Dosage: 300 MG, QD
     Route: 048
  12. HEPARIN [Concomitant]
     Dosage: 18,000 UNITS
     Route: 042
     Dates: start: 20040107, end: 20040107
  13. MANNITOL [Concomitant]
     Dosage: 150 G, UNK
     Route: 042
     Dates: start: 20040107, end: 20040107
  14. CEFAZOLIN [Concomitant]
     Dosage: 2 G, UNK
     Route: 042
     Dates: start: 20040107, end: 20040107
  15. LASIX [Concomitant]
     Dosage: 20 MG, PRN
  16. ALBUMIN (HUMAN) [Concomitant]
     Dosage: 100 ML, UNK
     Route: 042
     Dates: start: 20040107, end: 20040107
  17. AMIODARONE HCL [Concomitant]
  18. CADUET [Concomitant]
     Dosage: UNK
     Dates: start: 20040101
  19. NORVASC [Concomitant]
     Dosage: UNK
     Dates: start: 20040101
  20. RYTHMOL [Concomitant]
     Indication: PRODUCT USED FOR UNKNOWN INDICATION
     Dosage: 150 MG, TID
     Route: 048
     Dates: start: 19990101
  21. REGULAR INSULIN [Concomitant]
     Dosage: 10 U, UNK
     Route: 042
     Dates: start: 20040107, end: 20040107
  22. COUMADIN [Concomitant]
     Dosage: 4 MG, QD
     Route: 048
     Dates: start: 19990101
  23. PROTAMINE SULFATE [Concomitant]
     Dosage: 450 MG, UNK
     Route: 042
     Dates: start: 20040107, end: 20040107
  24. RED BLOOD CELLS [Concomitant]
     Dosage: 2 U, UNK
     Route: 042
     Dates: start: 20040107

REACTIONS (14)
  - DISABILITY [None]
  - ANXIETY [None]
  - FEAR OF DEATH [None]
  - EMOTIONAL DISTRESS [None]
  - NERVOUSNESS [None]
  - INJURY [None]
  - PAIN [None]
  - RENAL FAILURE [None]
  - DEPRESSION [None]
  - MULTI-ORGAN FAILURE [None]
  - UNEVALUABLE EVENT [None]
  - RENAL INJURY [None]
  - FEAR [None]
  - ANHEDONIA [None]
